FAERS Safety Report 18502272 (Version 1)
Quarter: 2020Q4

REPORT INFORMATION
  Report Type: Spontaneous
  Country: US (occurrence: US)
  Receive Date: 20201113
  Receipt Date: 20201113
  Transmission Date: 20210114
  Serious: No
  Sender: FDA-Public Use
  Company Number: US-AMGEN-USASP2020182910

PATIENT
  Sex: Male

DRUGS (1)
  1. MVASI [Suspect]
     Active Substance: BEVACIZUMAB-AWWB
     Indication: RECTAL CANCER
     Dosage: 375 MILLIGRAM
     Route: 065
     Dates: start: 20200608

REACTIONS (2)
  - Diarrhoea [Unknown]
  - Fatigue [Unknown]
